FAERS Safety Report 9109130 (Version 1)
Quarter: 2013Q1

REPORT INFORMATION
  Report Type: Report from Study
  Country: DE (occurrence: DE)
  Receive Date: 20130222
  Receipt Date: 20130222
  Transmission Date: 20140127
  Serious: Yes (Death, Life-Threatening, Hospitalization, Other)
  Sender: FDA-Public Use
  Company Number: DE-PFIZER INC-2013055913

PATIENT
  Age: 76 Year
  Sex: Female
  Weight: 48 kg

DRUGS (7)
  1. IRINOTECAN HCL [Suspect]
     Indication: COLORECTAL CANCER METASTATIC
     Dosage: 270 MG, EVERY 2 WEEKS
     Route: 042
     Dates: start: 20110707, end: 20111215
  2. CETUXIMAB [Suspect]
     Indication: COLORECTAL CANCER METASTATIC
     Dosage: 380 MG, WEEKLY
     Route: 042
     Dates: start: 20110707, end: 20111222
  3. FLUOROURACIL [Suspect]
     Indication: COLORECTAL CANCER METASTATIC
     Dosage: 3600 MG, EVERY 2 WEEKS
     Route: 042
     Dates: start: 20110707, end: 20111215
  4. FOLINIC ACID [Suspect]
     Indication: COLORECTAL CANCER METASTATIC
     Dosage: 600 MG, EVERY 2 WEEKS
     Route: 042
     Dates: start: 20110707, end: 20111215
  5. METOCLOPRAMIDE [Concomitant]
     Dosage: AS NEEDED
     Route: 048
     Dates: start: 20110825, end: 20120110
  6. ALENDRONIC ACID [Concomitant]
     Dosage: 70 MG, 1X/DAY
     Route: 048
     Dates: start: 20110901, end: 20120110
  7. TRAMADOL [Concomitant]
     Dosage: 40 GTT, 2X/DAY
     Route: 048
     Dates: start: 20110901, end: 20120110

REACTIONS (2)
  - Disease progression [Fatal]
  - Colorectal cancer metastatic [Fatal]
